FAERS Safety Report 9266727 (Version 1)
Quarter: 2013Q2

REPORT INFORMATION
  Report Type: Spontaneous
  Country: US (occurrence: US)
  Receive Date: 20130502
  Receipt Date: 20130502
  Transmission Date: 20140414
  Serious: Yes (Other)
  Sender: FDA-Public Use
  Company Number: US-PFIZER INC-2013132819

PATIENT
  Age: 63 Year
  Sex: Male
  Weight: 145 kg

DRUGS (10)
  1. VIAGRA [Suspect]
     Indication: ERECTILE DYSFUNCTION
     Dosage: UNK, AS NEEDED
     Dates: start: 2012
  2. VENLAFAXINE [Concomitant]
     Indication: MENTAL DISORDER
     Dosage: 75 MG, UNK
  3. PERCOCET [Concomitant]
     Dosage: UNK
  4. PROZAC [Concomitant]
     Indication: MENTAL DISORDER
     Dosage: 10 MG, UNK
  5. CALCIUM [Concomitant]
     Dosage: UNK
  6. LASIX [Concomitant]
     Indication: FLUID RETENTION
     Dosage: 80 MG, UNK
  7. METFORMIN [Concomitant]
     Indication: DIABETES MELLITUS
     Dosage: UNK
  8. GLYBURIDE [Concomitant]
     Indication: DIABETES MELLITUS
     Dosage: UNK
  9. GABAPENTIN [Concomitant]
     Indication: PAIN IN EXTREMITY
     Dosage: UNK, 3X/DAY
  10. ASPIRIN [Concomitant]
     Indication: CARDIAC DISORDER
     Dosage: UNK

REACTIONS (3)
  - Eye injury [Unknown]
  - Skull fracture [Unknown]
  - Pain [Unknown]
